FAERS Safety Report 16571941 (Version 1)
Quarter: 2019Q3

REPORT INFORMATION
  Report Type: Spontaneous
  Country: FR (occurrence: FR)
  Receive Date: 20190715
  Receipt Date: 20190715
  Transmission Date: 20191004
  Serious: Yes (Hospitalization)
  Sender: FDA-Public Use
  Company Number: PHHY2019FR159918

PATIENT
  Age: 73 Year
  Sex: Male
  Weight: 49 kg

DRUGS (2)
  1. ADVAGRAF [Suspect]
     Active Substance: TACROLIMUS
     Indication: RENAL TRANSPLANT
     Dosage: 1.5 MG, UNK
     Route: 048
  2. MYFORTIC [Suspect]
     Active Substance: MYCOPHENOLATE SODIUM
     Indication: RENAL TRANSPLANT
     Dosage: 7200 MG, UNK
     Route: 048

REACTIONS (3)
  - Acute kidney injury [Recovering/Resolving]
  - Lung disorder [Recovered/Resolved]
  - Cytomegalovirus viraemia [Recovering/Resolving]

NARRATIVE: CASE EVENT DATE: 20190223
